FAERS Safety Report 15367138 (Version 1)
Quarter: 2018Q3

REPORT INFORMATION
  Report Type: Spontaneous
  Country: US (occurrence: US)
  Receive Date: 20180910
  Receipt Date: 20180910
  Transmission Date: 20181010
  Serious: No
  Sender: FDA-Public Use
  Company Number: US-ALLERGAN-1816725US

PATIENT
  Age: 27 Year
  Sex: Female

DRUGS (4)
  1. CARAFATE [Suspect]
     Active Substance: SUCRALFATE
     Indication: EPIGASTRIC DISCOMFORT
     Dosage: UNK UNK, TID
     Route: 065
     Dates: start: 201608, end: 201803
  2. ACIPHEX [Concomitant]
     Active Substance: RABEPRAZOLE SODIUM
     Dosage: UNK
     Route: 065
  3. CARAFATE [Suspect]
     Active Substance: SUCRALFATE
     Indication: DECREASED APPETITE
  4. CARAFATE [Suspect]
     Active Substance: SUCRALFATE
     Indication: NAUSEA

REACTIONS (3)
  - Inappropriate schedule of drug administration [Unknown]
  - Drug ineffective [Unknown]
  - Off label use [Unknown]
